FAERS Safety Report 9522568 (Version 2)
Quarter: 2014Q4

REPORT INFORMATION
  Report Type: Spontaneous
  Country: US (occurrence: US)
  Receive Date: 20130913
  Receipt Date: 20141010
  Transmission Date: 20150529
  Serious: Yes (Hospitalization, Other)
  Sender: FDA-Public Use
  Company Number: US-BAYER-2013-110619

PATIENT
  Age: 28 Year
  Sex: Female
  Weight: 42.18 kg

DRUGS (5)
  1. AMOXICILLIN. [Concomitant]
     Active Substance: AMOXICILLIN
     Dosage: UNK
  2. XOPENEX [Concomitant]
     Active Substance: LEVALBUTEROL HYDROCHLORIDE
     Indication: CYSTIC FIBROSIS
     Dosage: UNK
     Dates: start: 2005
  3. MIRENA [Suspect]
     Active Substance: LEVONORGESTREL
     Indication: MENORRHAGIA
     Dosage: 20 MCG/24HR, CONT
     Route: 015
     Dates: start: 20091005, end: 20101111
  4. PULMOZYME [Suspect]
     Active Substance: DORNASE ALFA
     Indication: CYSTIC FIBROSIS
     Dosage: UNK
     Route: 045
     Dates: start: 1990
  5. TOBRAMYCIN. [Concomitant]
     Active Substance: TOBRAMYCIN
     Indication: CYSTIC FIBROSIS
     Dosage: UNK
     Dates: start: 1997

REACTIONS (9)
  - Back pain [None]
  - Depression [None]
  - Anxiety [None]
  - Injury [None]
  - Emotional distress [None]
  - Uterine perforation [None]
  - Medical device complication [None]
  - Off label use [None]
  - Pain [None]

NARRATIVE: CASE EVENT DATE: 20091005
